FAERS Safety Report 4950935-6 (Version None)
Quarter: 2006Q1

REPORT INFORMATION
  Report Type: 
  Country: None (occurrence: None)
  Receive Date: 20060322
  Receipt Date: 20060321
  Transmission Date: 20060701
  Serious: Yes (Life-Threatening, Hospitalization)
  Sender: FDA-Public Use
  Company Number: NL-BOEHRINGER INGELHEIM PHARMACEUTICALS, INC.-2006-NL-00075NL

PATIENT
  Sex: Female

DRUGS (1)
  1. MOVICOX 15 MG TABLETS [Suspect]
     Indication: RHEUMATOID ARTHRITIS
     Dates: start: 20000101, end: 20021101

REACTIONS (4)
  - ABDOMINAL PAIN [None]
  - CYSTITIS [None]
  - PAIN [None]
  - PYREXIA [None]
